FAERS Safety Report 23932894 (Version 1)
Quarter: 2024Q2

REPORT INFORMATION
  Report Type: Spontaneous
  Country: US (occurrence: None)
  Receive Date: 20240602
  Receipt Date: 20240602
  Transmission Date: 20240716
  Serious: Yes (Hospitalization)
  Sender: FDA-Public Use
  Company Number: None

PATIENT
  Age: 47 Year
  Sex: Female
  Weight: 54 kg

DRUGS (6)
  1. LYBALVI [Suspect]
     Active Substance: OLANZAPINE\SAMIDORPHAN L-MALATE
     Indication: Psychotic disorder
     Dosage: 1 TABLET AT BEDTIME ORAL
     Route: 048
     Dates: start: 20240529, end: 20240529
  2. SUBOXONE [Concomitant]
     Active Substance: BUPRENORPHINE HYDROCHLORIDE\NALOXONE HYDROCHLORIDE
  3. ADDERALL [Concomitant]
     Active Substance: AMPHETAMINE ASPARTATE\AMPHETAMINE SULFATE\DEXTROAMPHETAMINE SACCHARATE\DEXTROAMPHETAMINE SULFATE
  4. VITAMIN D NOS [Concomitant]
     Active Substance: CHOLECALCIFEROL\ERGOCALCIFEROL
  5. FOLIC ACID [Concomitant]
     Active Substance: FOLIC ACID
  6. VITAMINS [Concomitant]
     Active Substance: VITAMINS

REACTIONS (5)
  - Drug withdrawal syndrome [None]
  - Electrolyte imbalance [None]
  - Psychotic disorder [None]
  - Delirium [None]
  - Aggression [None]

NARRATIVE: CASE EVENT DATE: 20240529
